FAERS Safety Report 7710274-7 (Version None)
Quarter: 2011Q3

REPORT INFORMATION
  Report Type: 
  Country: None (occurrence: None)
  Receive Date: 20110825
  Receipt Date: 20110817
  Transmission Date: 20111222
  Serious: Yes (Hospitalization)
  Sender: FDA-Public Use
  Company Number: US-BRISTOL-MYERS SQUIBB COMPANY-15980105

PATIENT
  Age: 50 Year
  Sex: Female
  Weight: 68 kg

DRUGS (7)
  1. DILAUDID [Concomitant]
     Indication: PAIN
     Route: 048
     Dates: start: 20110805
  2. METHADONE HCL [Concomitant]
  3. LASIX [Concomitant]
     Route: 048
     Dates: start: 20110810
  4. DURAGESIC-100 [Concomitant]
     Dates: start: 20110812
  5. LISINOPRIL [Concomitant]
     Route: 048
     Dates: start: 20110601
  6. DASATINIB [Suspect]
     Indication: BREAST CANCER METASTATIC
     Route: 048
     Dates: start: 20110812, end: 20110815
  7. IXABEPILONE [Suspect]
     Indication: BREAST CANCER METASTATIC
     Dosage: ON DAY 1,8,15,28
     Route: 042
     Dates: start: 20110812, end: 20110812

REACTIONS (3)
  - CHEST PAIN [None]
  - MYOCARDIAL INFARCTION [None]
  - ELECTROCARDIOGRAM ABNORMAL [None]
